FAERS Safety Report 18389378 (Version 1)
Quarter: 2020Q4

REPORT INFORMATION
  Report Type: Spontaneous
  Country: DE (occurrence: DE)
  Receive Date: 20201015
  Receipt Date: 20201015
  Transmission Date: 20210114
  Serious: Yes (Hospitalization)
  Sender: FDA-Public Use
  Company Number: DE-JNJFOC-20200949009

PATIENT
  Age: 41 Year
  Sex: Female

DRUGS (2)
  1. REMICADE [Suspect]
     Active Substance: INFLIXIMAB
     Indication: PRODUCT USED FOR UNKNOWN INDICATION
     Route: 042
     Dates: start: 20100210
  2. NAIXAN [Suspect]
     Active Substance: NAPROXEN SODIUM
     Indication: SPONDYLOARTHROPATHY
     Route: 048
     Dates: start: 20100210

REACTIONS (1)
  - Hepatic enzyme increased [Recovering/Resolving]
